FAERS Safety Report 6711665-3 (Version None)
Quarter: 2010Q2

REPORT INFORMATION
  Report Type: 
  Country: None (occurrence: None)
  Receive Date: 20100505
  Receipt Date: 20100427
  Transmission Date: 20101027
  Serious: Yes (Hospitalization)
  Sender: FDA-Public Use
  Company Number: ES-JNJFOC-20080901132

PATIENT
  Sex: Male
  Weight: 51.5 kg

DRUGS (14)
  1. INTELENCE [Suspect]
     Route: 048
  2. INTELENCE [Suspect]
     Indication: HIV INFECTION
     Route: 048
  3. PREZISTA [Suspect]
     Indication: HIV INFECTION
     Route: 048
  4. RITONAVIR [Suspect]
     Indication: HIV INFECTION
     Route: 048
  5. PLUSVENT [Concomitant]
     Indication: DRUG USE FOR UNKNOWN INDICATION
     Route: 065
  6. TRUVADA [Concomitant]
     Indication: HIV INFECTION
     Route: 048
  7. RALTEGRAVIR [Concomitant]
     Indication: HIV INFECTION
     Route: 048
  8. MARAVIROC [Concomitant]
     Indication: HIV INFECTION
     Route: 048
  9. PANTOPRAZOL [Concomitant]
  10. ISOVORIN [Concomitant]
  11. MOTILIUM [Concomitant]
  12. SEPTRIN FORTE [Concomitant]
  13. VENTOLIN [Concomitant]
  14. SPIRIVA [Concomitant]

REACTIONS (2)
  - KLEBSIELLA INFECTION [None]
  - TYPE 2 DIABETES MELLITUS [None]
